FAERS Safety Report 16977126 (Version 1)
Quarter: 2019Q4

REPORT INFORMATION
  Report Type: Report from Study
  Country: IN (occurrence: IN)
  Receive Date: 20191030
  Receipt Date: 20191030
  Transmission Date: 20200122
  Serious: Yes (Other)
  Sender: FDA-Public Use
  Company Number: IN-B.I. PHARMACEUTICALS,INC./RIDGEFIELD-2019-BI-109971

PATIENT

DRUGS (2)
  1. CATAPRESAN [Suspect]
     Active Substance: CLONIDINE
     Indication: SPINAL ANAESTHESIA
     Dosage: 150 MICROGRAM (TOTAL VOLUME 31ML)
     Route: 065
  2. ROPIVACAINE. [Suspect]
     Active Substance: ROPIVACAINE HYDROCHLORIDE
     Indication: SPINAL ANAESTHESIA
     Dosage: 0.5%-30 ML (TOTAL VOLUME 31ML)
     Route: 065

REACTIONS (1)
  - Horner^s syndrome [Unknown]
